FAERS Safety Report 6393512-5 (Version None)
Quarter: 2009Q4

REPORT INFORMATION
  Report Type: 
  Country: None (occurrence: None)
  Receive Date: 20091008
  Receipt Date: 20090929
  Transmission Date: 20100525
  Serious: Yes (Death, Hospitalization)
  Sender: FDA-Public Use
  Company Number: A0809134A

PATIENT
  Age: 35 Year
  Sex: Male
  Weight: 90.9 kg

DRUGS (1)
  1. AVANDIA [Suspect]
     Dates: start: 20031001, end: 20061207

REACTIONS (3)
  - ARRHYTHMIA [None]
  - CARDIO-RESPIRATORY ARREST [None]
  - DIABETES MELLITUS [None]
